FAERS Safety Report 6129766-X (Version None)
Quarter: 2009Q1

REPORT INFORMATION
  Report Type: 
  Country: None (occurrence: None)
  Receive Date: 20090324
  Receipt Date: 20090320
  Transmission Date: 20090719
  Serious: Yes (Other)
  Sender: FDA-Public Use
  Company Number: D0060333A

PATIENT
  Age: 51 Year
  Sex: Male

DRUGS (1)
  1. ATEMUR [Suspect]
     Indication: ASTHMA
     Route: 055
     Dates: start: 19890101

REACTIONS (1)
  - OSTEONECROSIS [None]
